FAERS Safety Report 7864247-4 (Version None)
Quarter: 2011Q4

REPORT INFORMATION
  Report Type: 
  Country: None (occurrence: None)
  Receive Date: 20111028
  Receipt Date: 20111019
  Transmission Date: 20120403
  Serious: Yes (Hospitalization)
  Sender: FDA-Public Use
  Company Number: SK-JNJFOC-20111008321

PATIENT
  Sex: Male

DRUGS (10)
  1. NIZORAL [Suspect]
     Indication: FUNGAL INFECTION
     Route: 048
     Dates: end: 20110905
  2. BISOPROLOL [Suspect]
     Indication: PRODUCT USED FOR UNKNOWN INDICATION
     Route: 065
  3. TAMSULOSIN HCL [Concomitant]
     Route: 065
  4. OMEPRAZOLE [Suspect]
     Indication: PRODUCT USED FOR UNKNOWN INDICATION
     Route: 065
  5. FUROSEMIDE [Suspect]
     Indication: PRODUCT USED FOR UNKNOWN INDICATION
     Route: 065
  6. SPIRONOLACTONE [Suspect]
     Indication: PRODUCT USED FOR UNKNOWN INDICATION
     Route: 065
  7. VALSARTAN [Concomitant]
     Route: 065
  8. EUPHYLLIN CR N [Concomitant]
     Route: 065
  9. TOVIAZ [Concomitant]
     Route: 065
  10. CORVATON [Concomitant]
     Route: 065

REACTIONS (2)
  - BONE MARROW FAILURE [None]
  - PANCYTOPENIA [None]
